FAERS Safety Report 5120028-6 (Version None)
Quarter: 2006Q3

REPORT INFORMATION
  Report Type: 
  Country: None (occurrence: None)
  Receive Date: 20060929
  Receipt Date: 20060914
  Transmission Date: 20061208
  Serious: Yes (Other)
  Sender: FDA-Public Use
  Company Number: 2006EU002569

PATIENT
  Age: 23 Year
  Sex: Female

DRUGS (4)
  1. PROGRAF [Suspect]
     Indication: HEART TRANSPLANT
     Dosage: D, ORAL; ORAL
     Route: 048
     Dates: start: 20010205, end: 20030303
  2. PROGRAF [Suspect]
     Indication: HEART TRANSPLANT
     Dosage: D, ORAL; ORAL
     Route: 048
     Dates: start: 20040301
  3. IMUREL [Concomitant]
  4. SOLUPRED (PREDNISOLONE SODIUM SULFOBENZOATE) [Concomitant]

REACTIONS (3)
  - CORONARY ARTERY DISEASE [None]
  - DRUG EXPOSURE BEFORE PREGNANCY [None]
  - PREGNANCY [None]
